FAERS Safety Report 9741061 (Version 1)
Quarter: 2013Q4

REPORT INFORMATION
  Report Type: Spontaneous
  Country: BR (occurrence: BR)
  Receive Date: 20131209
  Receipt Date: 20131209
  Transmission Date: 20140711
  Serious: Yes (Hospitalization)
  Sender: FDA-Public Use
  Company Number: BR-PFIZER INC-2013348762

PATIENT
  Age: 65 Year
  Sex: Female

DRUGS (1)
  1. EFEXOR XR [Suspect]
     Indication: DEPRESSION
     Dosage: 150 MG (TWO CAPSULES OF 75 MG), DAILY
     Route: 048
     Dates: start: 2008

REACTIONS (2)
  - Intervertebral disc protrusion [Unknown]
  - Nosocomial infection [Unknown]
